FAERS Safety Report 7586067-0 (Version None)
Quarter: 2011Q2

REPORT INFORMATION
  Report Type: 
  Country: None (occurrence: None)
  Receive Date: 20110624
  Receipt Date: 20110610
  Transmission Date: 20111010
  Serious: Yes (Hospitalization)
  Sender: FDA-Public Use
  Company Number: 2011SP026872

PATIENT
  Age: 62 Year
  Sex: Male

DRUGS (2)
  1. VECURONIUM BROMIDE [Concomitant]
  2. BRIDION (SUGAMMADEX /00000000/) [Suspect]
     Indication: ANAESTHESIA REVERSAL
     Dosage: 200 MG;ONCE;IV
     Route: 042
     Dates: start: 20110607

REACTIONS (9)
  - ATELECTASIS [None]
  - RASH [None]
  - COUGH [None]
  - WHEEZING [None]
  - HYPOTENSION [None]
  - OXYGEN SATURATION DECREASED [None]
  - BRONCHOSPASM [None]
  - HYPERSENSITIVITY [None]
  - TACHYCARDIA [None]
